FAERS Safety Report 6640523-8 (Version None)
Quarter: 2010Q1

REPORT INFORMATION
  Report Type: 
  Country: None (occurrence: None)
  Receive Date: 20100318
  Receipt Date: 20100309
  Transmission Date: 20100710
  Serious: Yes (Other)
  Sender: FDA-Public Use
  Company Number: US-MERCK-1003USA01277

PATIENT

DRUGS (5)
  1. FOSAMAX [Suspect]
     Route: 048
  2. BONIVA [Suspect]
     Route: 065
  3. RECLAST [Suspect]
     Route: 065
  4. EVISTA [Suspect]
     Route: 065
  5. ACTONEL [Suspect]
     Route: 065

REACTIONS (2)
  - FEMUR FRACTURE [None]
  - FOOT FRACTURE [None]
